FAERS Safety Report 15843828 (Version 1)
Quarter: 2019Q1

REPORT INFORMATION
  Report Type: Spontaneous
  Country: US (occurrence: US)
  Receive Date: 20190118
  Receipt Date: 20190118
  Transmission Date: 20190417
  Serious: Yes (Other)
  Sender: FDA-Public Use
  Company Number: PHHY2019US004720

PATIENT
  Age: 4 Year
  Sex: Male

DRUGS (1)
  1. METHOTREXATE. [Suspect]
     Active Substance: METHOTREXATE
     Indication: B PRECURSOR TYPE ACUTE LEUKAEMIA
     Dosage: UNK
     Route: 037

REACTIONS (9)
  - Leukoencephalopathy [Recovering/Resolving]
  - Ataxia [Recovering/Resolving]
  - Asthenia [Recovering/Resolving]
  - Speech disorder [Recovering/Resolving]
  - Perseveration [Recovering/Resolving]
  - Encephalitis autoimmune [Recovering/Resolving]
  - Fall [Recovering/Resolving]
  - Fine motor skill dysfunction [Recovering/Resolving]
  - Defiant behaviour [Recovering/Resolving]
